FAERS Safety Report 17477701 (Version 2)
Quarter: 2020Q2

REPORT INFORMATION
  Report Type: Spontaneous
  Country: FR (occurrence: FR)
  Receive Date: 20200228
  Receipt Date: 20200407
  Transmission Date: 20200713
  Serious: Yes (Hospitalization)
  Sender: FDA-Public Use
  Company Number: FR-TEVA-2020-FR-1192394

PATIENT
  Age: 23 Year
  Sex: Female

DRUGS (4)
  1. OXOMEMAZINE [Suspect]
     Active Substance: OXOMEMAZINE
     Indication: COUGH
     Route: 048
     Dates: start: 20200129, end: 20200131
  2. AZITHROMYCINE MONOHYDRAT?E [Suspect]
     Active Substance: AZITHROMYCIN MONOHYDRATE
     Indication: TONSILLITIS
     Dosage: 500 MG 1 DAYS
     Route: 048
     Dates: start: 20200129, end: 20200131
  3. CONTRACEPTIF OESTROPROGESTATIF NON PRECISE [Concomitant]
  4. SERETIDE [Concomitant]
     Active Substance: FLUTICASONE PROPIONATE\SALMETEROL XINAFOATE

REACTIONS (2)
  - Rhabdomyolysis [Recovered/Resolved]
  - Acute kidney injury [Recovered/Resolved with Sequelae]

NARRATIVE: CASE EVENT DATE: 20200201
